FAERS Safety Report 25707816 (Version 1)
Quarter: 2025Q3

REPORT INFORMATION
  Report Type: Spontaneous
  Country: US (occurrence: US)
  Receive Date: 20250820
  Receipt Date: 20250820
  Transmission Date: 20251021
  Serious: Yes (Other)
  Sender: PFIZER
  Company Number: US-PFIZER INC-202500165426

PATIENT
  Age: 74 Year
  Sex: Female

DRUGS (3)
  1. PALBOCICLIB [Suspect]
     Active Substance: PALBOCICLIB
     Indication: Breast cancer
  2. ANASTROZOLE [Suspect]
     Active Substance: ANASTROZOLE
     Indication: Breast cancer
  3. FULVESTRANT [Suspect]
     Active Substance: FULVESTRANT
     Indication: Breast cancer

REACTIONS (2)
  - Musculoskeletal toxicity [Unknown]
  - Neutrophil count decreased [Unknown]
